FAERS Safety Report 5833660-9 (Version None)
Quarter: 2008Q3

REPORT INFORMATION
  Report Type: 
  Country: None (occurrence: None)
  Receive Date: 20080805
  Receipt Date: 20080724
  Transmission Date: 20090109
  Serious: Yes (Hospitalization)
  Sender: FDA-Public Use
  Company Number: GB-ASTRAZENECA-2008GB01060

PATIENT
  Age: 65 Year
  Sex: Male
  Weight: 70.8 kg

DRUGS (2)
  1. OMEPRAZOLE [Suspect]
     Indication: GASTROOESOPHAGEAL REFLUX DISEASE
     Dosage: 20 MG
     Route: 048
     Dates: start: 20070101, end: 20080501
  2. BETAHISTINE [Concomitant]
     Dosage: 16 MG
     Dates: start: 20080301, end: 20080516

REACTIONS (3)
  - CONVULSION [None]
  - HYPOCALCAEMIA [None]
  - HYPONATRAEMIA [None]
